FAERS Safety Report 8027729 (Version 2)
Quarter: 2012Q4

REPORT INFORMATION
  Report Type: 
  Country: US (occurrence: US)
  Receive Date: 20110711
  Receipt Date: 20121022
  Transmission Date: 20130627
  Serious: Yes (Hospitalization, Disabling)
  Sender: FDA-Public Use
  Company Number: US-BAYER-2011-058403

PATIENT
  Age: 34 Year
  Sex: Female
  Weight: 90.7 kg

DRUGS (8)
  1. YAZ [Suspect]
     Dosage: UNK
     Dates: start: 20090602, end: 201002
  2. ORTHO TRI CYCLEN [Suspect]
  3. TYLENOL [Concomitant]
     Dosage: UNK UNK, PRN
  4. TRAMADOL [Concomitant]
     Indication: PAIN
     Dosage: UNK
     Route: 048
     Dates: start: 2010
  5. OXYCODONE [Concomitant]
     Indication: PAIN
     Dosage: UNK
     Route: 048
     Dates: start: 2010
  6. CANNABIS SATIVA SUBSP. INDICA TOP [Concomitant]
     Dosage: 20 days before onset of injuries
  7. AMPHETAMINE SALTS [Concomitant]
     Dosage: 20 days before onset of injuries
  8. LAXATIVE [Concomitant]

REACTIONS (7)
  - Pulmonary embolism [None]
  - Dyspnoea [None]
  - Chest pain [None]
  - Injury [None]
  - Pain [None]
  - Anxiety [None]
  - Anhedonia [None]
